FAERS Safety Report 8905618 (Version 1)
Quarter: 2012Q4

REPORT INFORMATION
  Report Type: 
  Country: IN (occurrence: IN)
  Receive Date: 20121113
  Receipt Date: 20121113
  Transmission Date: 20130627
  Serious: Yes (Other)
  Sender: FDA-Public Use
  Company Number: IN-WATSON-2012-19271

PATIENT
  Age: 48 Year
  Sex: Male

DRUGS (1)
  1. CABERGOLINE (UNKNOWN) [Suspect]
     Indication: PROLACTINOMA
     Dosage: 0.5 mg, tid
     Route: 065

REACTIONS (2)
  - Drug effect incomplete [Unknown]
  - Headache [Recovered/Resolved]
